FAERS Safety Report 4601227-6 (Version None)
Quarter: 2005Q1

REPORT INFORMATION
  Report Type: 
  Country: None (occurrence: None)
  Receive Date: 20050204
  Receipt Date: 20040220
  Transmission Date: 20050727
  Serious: Yes (Hospitalization)
  Sender: FDA-Public Use
  Company Number: US-SHR-04-021796

PATIENT
  Age: 37 Year
  Sex: Female

DRUGS (1)
  1. MIRENA [Suspect]
     Indication: CONTRACEPTION
     Dosage: 20 MICROG/DAY, INTRA-UTERINE
     Route: 015
     Dates: start: 20031001, end: 20031007

REACTIONS (2)
  - IUCD COMPLICATION [None]
  - UTERINE PERFORATION [None]
